FAERS Safety Report 25317752 (Version 5)
Quarter: 2025Q3

REPORT INFORMATION
  Report Type: Report from Study
  Country: JP (occurrence: JP)
  Receive Date: 20250515
  Receipt Date: 20250813
  Transmission Date: 20251021
  Serious: Yes (Death, Life-Threatening, Hospitalization, Other)
  Sender: ALEXION PHARMACEUTICALS
  Company Number: JP-ASTRAZENECA-240007690_011820_P_1

PATIENT
  Age: 17 Year
  Sex: Male
  Weight: 28 kg

DRUGS (1)
  1. KOSELUGO [Suspect]
     Active Substance: SELUMETINIB
     Indication: Neurofibromatosis
     Dosage: 50 MILLIGRAM, QD (MOSTLY ON AN EMPTY STOMACH)
     Dates: start: 20230323, end: 20250509

REACTIONS (8)
  - Cardiac tamponade [Fatal]
  - Mediastinum neoplasm [Fatal]
  - Cardiac dysfunction [Unknown]
  - Dermatitis acneiform [Unknown]
  - Eczema [Recovering/Resolving]
  - Stomatitis [Recovering/Resolving]
  - Oedema peripheral [Unknown]
  - Deformity thorax [Unknown]

NARRATIVE: CASE EVENT DATE: 20230421
